FAERS Safety Report 19131670 (Version 1)
Quarter: 2021Q2

REPORT INFORMATION
  Report Type: Spontaneous
  Country: US (occurrence: US)
  Receive Date: 20210413
  Receipt Date: 20210413
  Transmission Date: 20210717
  Serious: Yes (Other)
  Sender: FDA-Public Use
  Company Number: US-GLAXOSMITHKLINE-USCH2021018064

PATIENT
  Age: 74 Year
  Sex: Female

DRUGS (2)
  1. BIOTENE DRY MOUTH GENTLE ORAL RINSE MILD MINT SOLUTION (GLYCERIN) [Suspect]
     Active Substance: GLYCERIN
     Indication: PRODUCT USED FOR UNKNOWN INDICATION
     Dates: start: 20210329, end: 20210405
  2. BIOTENE FRESH MINT ORIGINAL (SODIUM FLUORIDE) [Suspect]
     Active Substance: SODIUM FLUORIDE
     Indication: DRY MOUTH

REACTIONS (1)
  - Burn oral cavity [Unknown]

NARRATIVE: CASE EVENT DATE: 20210329
